FAERS Safety Report 4780482-6 (Version None)
Quarter: 2005Q3

REPORT INFORMATION
  Report Type: 
  Country: None (occurrence: None)
  Receive Date: 20050926
  Receipt Date: 20050914
  Transmission Date: 20060218
  Serious: Yes (Other)
  Sender: FDA-Public Use
  Company Number: 2005097648

PATIENT
  Age: 59 Year
  Sex: Female
  Weight: 62.5964 kg

DRUGS (6)
  1. ZOLOFT [Suspect]
     Indication: ANXIETY
     Dosage: (2 IN 1 D); ORAL
     Route: 048
     Dates: start: 20010101, end: 20010101
  2. ZOLOFT [Suspect]
     Indication: DEPRESSION
     Dosage: (2 IN 1 D); ORAL
     Route: 048
     Dates: start: 20010101, end: 20010101
  3. ZOLOFT [Suspect]
     Indication: PANIC DISORDER
     Dosage: (2 IN 1 D); ORAL
     Route: 048
     Dates: start: 20010101, end: 20010101
  4. CLONAZEPAM [Suspect]
     Indication: ILL-DEFINED DISORDER
     Dosage: ORAL
     Route: 048
  5. EVISTA [Concomitant]
  6. DILANTIN [Concomitant]

REACTIONS (7)
  - FEELING ABNORMAL [None]
  - HEART RATE IRREGULAR [None]
  - HOMICIDAL IDEATION [None]
  - INFLUENZA [None]
  - MOOD SWINGS [None]
  - SUICIDAL IDEATION [None]
  - WEIGHT DECREASED [None]
